FAERS Safety Report 12493309 (Version 1)
Quarter: 2016Q2

REPORT INFORMATION
  Report Type: Spontaneous
  Country: US (occurrence: US)
  Receive Date: 20160623
  Receipt Date: 20160623
  Transmission Date: 20160815
  Serious: Yes (Hospitalization)
  Sender: FDA-Public Use
  Company Number: US-CONCORDIA PHARMACEUTICALS INC.-GSH201606-002990

PATIENT
  Age: 17 Year
  Sex: Male

DRUGS (4)
  1. CAFFEINE. [Concomitant]
     Active Substance: CAFFEINE
  2. METOPROLOL. [Suspect]
     Active Substance: METOPROLOL
  3. AMLODIPINE [Suspect]
     Active Substance: AMLODIPINE BESYLATE
  4. TRAZODONE [Concomitant]
     Active Substance: TRAZODONE HYDROCHLORIDE

REACTIONS (3)
  - Intentional overdose [Recovered/Resolved]
  - Circulatory collapse [Recovered/Resolved]
  - Cardiac arrest [Recovered/Resolved]
